FAERS Safety Report 18816694 (Version 1)
Quarter: 2021Q1

REPORT INFORMATION
  Report Type: Spontaneous
  Country: US (occurrence: US)
  Receive Date: 20210201
  Receipt Date: 20210201
  Transmission Date: 20210419
  Serious: No
  Sender: FDA-Public Use
  Company Number: US-APOTEX-2021AP001588

PATIENT

DRUGS (1)
  1. CALCITONIN SALMON (SYNTHETIC ORIGIN) NASAL SPRAY [Suspect]
     Active Substance: CALCITONIN SALMON
     Indication: PRODUCT USED FOR UNKNOWN INDICATION
     Dosage: UNK
     Route: 065

REACTIONS (1)
  - Expired product administered [Unknown]
